FAERS Safety Report 15417366 (Version 1)
Quarter: 2018Q3

REPORT INFORMATION
  Report Type: Spontaneous
  Country: RS (occurrence: RS)
  Receive Date: 20180924
  Receipt Date: 20180924
  Transmission Date: 20181010
  Serious: Yes (Other)
  Sender: FDA-Public Use
  Company Number: RS-TEVA-2018-RS-957565

PATIENT
  Age: 81 Year
  Sex: Male

DRUGS (2)
  1. LEVOXA [Suspect]
     Active Substance: LEVOFLOXACIN
     Route: 048
     Dates: start: 20180916, end: 20180919
  2. KSALOL [Concomitant]
     Active Substance: ALPRAZOLAM
     Dosage: 0.25 TWICE DAILY
     Route: 065

REACTIONS (1)
  - Psychotic symptom [Unknown]
